FAERS Safety Report 7198926-1 (Version None)
Quarter: 2010Q4

REPORT INFORMATION
  Report Type: 
  Country: None (occurrence: None)
  Receive Date: 20101227
  Receipt Date: 20101214
  Transmission Date: 20110411
  Serious: Yes (Other)
  Sender: FDA-Public Use
  Company Number: BR-GENENTECH-311458

PATIENT
  Sex: Female
  Weight: 120 kg

DRUGS (13)
  1. RITUXIMAB [Suspect]
     Indication: RHEUMATOID ARTHRITIS
     Dosage: 1000 MG, UNK
     Route: 042
     Dates: start: 20081220
  2. FUROSEMIDE [Concomitant]
     Indication: POLYURIA
     Dosage: 1TAB/DAY
  3. LOSARTAN [Concomitant]
     Indication: HYPERTENSION
     Dosage: 2 TAB/DAY
  4. AMLODIPINE [Concomitant]
     Dosage: 1 TAB/NIGHT
  5. ATENSINA [Concomitant]
     Dosage: 3 TAB/DAY
  6. ALPRAZOLAM [Concomitant]
     Indication: ANTIDEPRESSANT THERAPY
     Dosage: 1 TAN/AT NIGTH
  7. FOLIC ACID [Concomitant]
     Dosage: 1 TAB/DAY
  8. BUPROPION [Concomitant]
     Dosage: 2 TAB/NIGHT
  9. CYCLOSPORINE [Concomitant]
     Dosage: 50 MG, UNK
  10. CAPTOPRIL [Concomitant]
     Dosage: 50 MG, UNK
  11. CITALOPRAM [Concomitant]
     Dosage: 50 MG, UNK
  12. PANTOPRAZOLE [Concomitant]
     Indication: PROPHYLAXIS
     Dosage: 40 MG, UNK
  13. VITAMIN D3 [Concomitant]
     Dosage: 25 GTT, UNK

REACTIONS (14)
  - AGITATION [None]
  - ALOPECIA [None]
  - ANAEMIA [None]
  - BLOOD IMMUNOGLOBULIN G INCREASED [None]
  - FEELING OF DESPAIR [None]
  - HEPATIC PAIN [None]
  - HYPERTENSION [None]
  - LIVER DISORDER [None]
  - PAIN [None]
  - RED BLOOD CELL SEDIMENTATION RATE INCREASED [None]
  - SKIN DISCOLOURATION [None]
  - SOMNOLENCE [None]
  - SWELLING [None]
  - WHITE BLOOD CELL COUNT DECREASED [None]
